FAERS Safety Report 6335413-4 (Version None)
Quarter: 2009Q3

REPORT INFORMATION
  Report Type: 
  Country: None (occurrence: None)
  Receive Date: 20090831
  Receipt Date: 20090825
  Transmission Date: 20100115
  Serious: Yes (Other)
  Sender: FDA-Public Use
  Company Number: PHEH2009US09863

PATIENT
  Sex: Female

DRUGS (8)
  1. RECLAST [Suspect]
     Dosage: UNK, UNK
     Dates: start: 20090821, end: 20090821
  2. SYNTHROID [Concomitant]
     Dosage: UNK, UNK
  3. MORPHINE [Concomitant]
     Dosage: UNK, UNK
  4. OXYCODONE [Concomitant]
     Dosage: UNK, UNK
  5. LASIX [Concomitant]
     Dosage: UNK, UNK
  6. VITAMIN D [Concomitant]
     Dosage: UNK, UNK
  7. LOVAZA [Concomitant]
     Dosage: UNK, UNK
  8. CALCIUM [Concomitant]
     Dosage: UNK, UNK

REACTIONS (2)
  - AMNESIA [None]
  - CIRCULATORY COLLAPSE [None]
